FAERS Safety Report 9988148 (Version 2)
Quarter: 2014Q1

REPORT INFORMATION
  Report Type: Spontaneous
  Country: US (occurrence: US)
  Receive Date: 20140308
  Receipt Date: 20140331
  Transmission Date: 20141002
  Serious: No
  Sender: FDA-Public Use
  Company Number: US-TEVA-466336USA

PATIENT
  Sex: Female

DRUGS (1)
  1. PROAIR HFA [Suspect]
     Dosage: 90 UG, FREQUENCY NOT PROVIDED
     Route: 055

REACTIONS (3)
  - Dysgeusia [Unknown]
  - Glossodynia [Unknown]
  - Lip pain [Unknown]
